FAERS Safety Report 8190408-3 (Version None)
Quarter: 2012Q1

REPORT INFORMATION
  Report Type: 
  Country: None (occurrence: None)
  Receive Date: 20120307
  Receipt Date: 20120302
  Transmission Date: 20120608
  Serious: No
  Sender: FDA-Public Use
  Company Number: US-BAYER-2012-022026

PATIENT
  Age: 81 Year
  Sex: Female
  Weight: 73 kg

DRUGS (7)
  1. ALEVE (CAPLET) [Suspect]
     Indication: PAIN
     Dosage: 1 DF, BID
     Route: 048
     Dates: start: 20120201, end: 20120229
  2. ACETYLSALICYLIC ACID SRT [Concomitant]
     Dosage: 81 MG, UNK
  3. KENALOG [Concomitant]
     Indication: ARTHRALGIA
     Dosage: 40 ML, ONCE, INJECTION
     Dates: start: 20120224, end: 20120224
  4. LISINOPRIL [Concomitant]
  5. PRAVACHOL [Concomitant]
  6. FISH OIL [Concomitant]
  7. LATANOPROST [Concomitant]

REACTIONS (3)
  - DIZZINESS [None]
  - BLOOD PRESSURE INCREASED [None]
  - HEADACHE [None]
